FAERS Safety Report 12327706 (Version 2)
Quarter: 2016Q3

REPORT INFORMATION
  Report Type: Spontaneous
  Country: US (occurrence: US)
  Receive Date: 20160503
  Receipt Date: 20160808
  Transmission Date: 20161109
  Serious: Yes (Hospitalization)
  Sender: FDA-Public Use
  Company Number: US-PFIZER INC-2016229992

PATIENT
  Age: 60 Year
  Sex: Female
  Weight: 68.95 kg

DRUGS (2)
  1. IBRANCE [Suspect]
     Active Substance: PALBOCICLIB
     Indication: BREAST CANCER METASTATIC
     Dosage: 100 MG, CYCLIC (21 DAYS AND THEN 7 DAYS OFF)
     Dates: start: 201503
  2. ASPIRIN. [Concomitant]
     Active Substance: ASPIRIN

REACTIONS (3)
  - Malaise [Unknown]
  - Aneurysm [Unknown]
  - Acute respiratory failure [Not Recovered/Not Resolved]
